FAERS Safety Report 9478609 (Version 4)
Quarter: 2013Q4

REPORT INFORMATION
  Report Type: Spontaneous
  Country: US (occurrence: US)
  Receive Date: 20130827
  Receipt Date: 20131206
  Transmission Date: 20140711
  Serious: Yes (Other)
  Sender: FDA-Public Use
  Company Number: US-PFIZER INC-2013243164

PATIENT
  Age: 49 Year
  Sex: Female

DRUGS (2)
  1. INLYTA [Suspect]
     Indication: RENAL CANCER METASTATIC
     Dosage: 7 MG 2X/DAY, (5 MG Q 12 HOURS AND 2 (1 MG) TABLETS Q 12 HOURS)
     Dates: start: 20121221
  2. INLYTA [Suspect]
     Dosage: 7 MG, 2X/DAY
     Dates: start: 20130214

REACTIONS (7)
  - Aphagia [Recovering/Resolving]
  - Abdominal distension [Recovering/Resolving]
  - Nausea [Recovering/Resolving]
  - Diarrhoea [Unknown]
  - Eyelid oedema [Unknown]
  - Hypoaesthesia [Unknown]
  - Paraesthesia [Unknown]
